FAERS Safety Report 5490380-0 (Version None)
Quarter: 2007Q4

REPORT INFORMATION
  Report Type: 
  Country: None (occurrence: None)
  Receive Date: 20071019
  Receipt Date: 20071010
  Transmission Date: 20080405
  Serious: Yes (Hospitalization)
  Sender: FDA-Public Use
  Company Number: PHNR2007AU01981

PATIENT
  Age: 59 Year
  Sex: Male

DRUGS (1)
  1. CLOZARIL [Suspect]
     Dosage: 25 MG - 750 MG DAILY
     Route: 048
     Dates: start: 19991223

REACTIONS (6)
  - CONSTIPATION [None]
  - INTESTINAL OBSTRUCTION [None]
  - LYMPHOCYTE COUNT DECREASED [None]
  - NEUTROPHIL COUNT DECREASED [None]
  - PNEUMONIA ASPIRATION [None]
  - RED CELL DISTRIBUTION WIDTH INCREASED [None]
